FAERS Safety Report 5467604-9 (Version None)
Quarter: 2007Q3

REPORT INFORMATION
  Report Type: 
  Country: None (occurrence: None)
  Receive Date: 20070921
  Receipt Date: 20070917
  Transmission Date: 20080115
  Serious: Yes (Life-Threatening, Hospitalization)
  Sender: FDA-Public Use
  Company Number: 17017

PATIENT
  Age: 63 Year
  Sex: Male

DRUGS (6)
  1. LEUCOVORIN [Suspect]
     Indication: COLON CANCER
  2. OXALIPLATIN [Suspect]
     Indication: COLON CANCER
  3. ELOXATIN [Suspect]
     Indication: COLON CANCER
  4. FLUOROURACIL [Suspect]
     Indication: COLON CANCER
  5. XELODA [Suspect]
     Indication: COLON CANCER
     Dates: start: 20060101
  6. OLANZAPINE [Concomitant]

REACTIONS (5)
  - AGITATION [None]
  - ANXIETY [None]
  - HAEMOLYTIC ANAEMIA [None]
  - PAIN [None]
  - RECURRENT CANCER [None]
